FAERS Safety Report 5885910-0 (Version None)
Quarter: 2008Q3

REPORT INFORMATION
  Report Type: 
  Country: None (occurrence: None)
  Receive Date: 20080917
  Receipt Date: 20080626
  Transmission Date: 20090109
  Serious: No
  Sender: FDA-Public Use
  Company Number: US-BAYER-200827200NA

PATIENT
  Age: 40 Year
  Sex: Female

DRUGS (2)
  1. AVELOX [Suspect]
     Indication: CHRONIC SINUSITIS
     Dosage: TOTAL DAILY DOSE: 400 MG  UNIT DOSE: 400 MG
     Route: 048
  2. VERAMYST [Suspect]

REACTIONS (5)
  - ERYTHEMA NODOSUM [None]
  - MYALGIA [None]
  - PYREXIA [None]
  - SKIN LESION [None]
  - URTICARIA [None]
